FAERS Safety Report 7716725-6 (Version None)
Quarter: 2011Q3

REPORT INFORMATION
  Report Type: 
  Country: None (occurrence: None)
  Receive Date: 20110829
  Receipt Date: 20110822
  Transmission Date: 20111222
  Serious: Yes (Other)
  Sender: FDA-Public Use
  Company Number: CA-MEDIMMUNE-MEDI-0013339

PATIENT
  Age: 1 Month
  Sex: Female
  Weight: 2.724 kg

DRUGS (1)
  1. SYNAGIS [Suspect]
     Route: 030

REACTIONS (4)
  - EYE SWELLING [None]
  - IRRITABILITY [None]
  - CRYING [None]
  - SWOLLEN TONGUE [None]
